FAERS Safety Report 19687870 (Version 2)
Quarter: 2022Q2

REPORT INFORMATION
  Report Type: Spontaneous
  Country: US (occurrence: US)
  Receive Date: 20210811
  Receipt Date: 20220418
  Transmission Date: 20220720
  Serious: No
  Sender: FDA-Public Use
  Company Number: US-PFIZER INC-2021240750

PATIENT
  Age: 72 Year
  Sex: Male
  Weight: 79.38 kg

DRUGS (1)
  1. TOVIAZ [Suspect]
     Active Substance: FESOTERODINE FUMARATE
     Indication: Urinary incontinence
     Dosage: 8 MG, DAILY
     Route: 048

REACTIONS (2)
  - Weight decreased [Unknown]
  - Expired product administered [Unknown]
